FAERS Safety Report 4706290-X (Version None)
Quarter: 2005Q2

REPORT INFORMATION
  Report Type: 
  Country: None (occurrence: None)
  Receive Date: 20050208
  Receipt Date: 20050208
  Transmission Date: 20051028
  Serious: No
  Sender: FDA-Public Use
  Company Number: None

PATIENT
  Age: 69 Year
  Sex: Male
  Weight: 115.2136 kg

DRUGS (1)
  1. GLUCOVANCE [Suspect]
     Indication: DIABETES MELLITUS
     Dosage: 2 TABS PO QAM 1 TAB NOON 1 TAB NITE
     Route: 048

REACTIONS (1)
  - DRUG INEFFECTIVE [None]
